FAERS Safety Report 24717959 (Version 2)
Quarter: 2024Q4

REPORT INFORMATION
  Report Type: Spontaneous
  Country: SI (occurrence: SI)
  Receive Date: 20241210
  Receipt Date: 20241218
  Transmission Date: 20250114
  Serious: Yes (Other)
  Sender: GLAXOSMITHKLINE
  Company Number: None

PATIENT

DRUGS (14)
  1. ALBUTEROL [Suspect]
     Active Substance: ALBUTEROL
     Indication: Product used for unknown indication
     Dosage: UNK (AS NEEDED)
     Route: 065
  2. FLUTICASONE FUROATE\VILANTEROL TRIFENATATE [Suspect]
     Active Substance: FLUTICASONE FUROATE\VILANTEROL TRIFENATATE
     Indication: Product used for unknown indication
     Dosage: 1 DF, QD (92/22MCG)
     Route: 065
     Dates: start: 20151110, end: 201511
  3. FLUTICASONE PROPIONATE [Suspect]
     Active Substance: FLUTICASONE PROPIONATE
     Indication: Product used for unknown indication
     Dosage: 250 ?G (2X1 INHALATION)
     Route: 055
     Dates: start: 20151118
  4. FLUTICASONE PROPIONATE [Suspect]
     Active Substance: FLUTICASONE PROPIONATE
     Dosage: 1 DF, QD (125 MCG 1 INHALATION PER DAY)
     Route: 055
     Dates: start: 20151118
  5. ALVESCO [Suspect]
     Active Substance: CICLESONIDE
     Indication: Asthma
     Dosage: 1 DF, QD
     Route: 055
     Dates: start: 201510, end: 201511
  6. ALVESCO [Suspect]
     Active Substance: CICLESONIDE
     Dosage: 1 DF, QD
     Route: 055
     Dates: start: 2023
  7. ALVESCO [Suspect]
     Active Substance: CICLESONIDE
     Dosage: 2 DF, QD (2X1 INHALATION AS NEEDED)
     Route: 055
     Dates: start: 202405
  8. ALVESCO [Suspect]
     Active Substance: CICLESONIDE
     Dosage: 2 DF, BID (2X1 INHALATION AS NEEDED)
     Route: 055
  9. MOMETASONE [Suspect]
     Active Substance: MOMETASONE
     Indication: Product used for unknown indication
     Dosage: 2 PUFF(S) (MOMETASONE SPRAY 2X1 PUFF IN EACH NOSTRIL)
     Route: 045
     Dates: start: 20230426
  10. OLOPATADINE [Suspect]
     Active Substance: OLOPATADINE
     Indication: Product used for unknown indication
     Dosage: UNK (AS NEEDED)
     Route: 050
  11. DESLORATADINE [Suspect]
     Active Substance: DESLORATADINE
     Indication: Product used for unknown indication
     Dosage: 1 DF, QD
     Route: 065
  12. BUDESONIDE\FORMOTEROL [Suspect]
     Active Substance: BUDESONIDE\FORMOTEROL
     Indication: Dyspnoea
     Dosage: UNK (160/4.5 MCG AS NEEDED)
     Route: 065
  13. AZITHROMYCIN [Suspect]
     Active Substance: AZITHROMYCIN
     Indication: Product used for unknown indication
     Dosage: UNK
     Route: 065
  14. FENOTEROL HYDROBROMIDE\IPRATROPIUM BROMIDE [Concomitant]
     Active Substance: FENOTEROL HYDROBROMIDE\IPRATROPIUM BROMIDE
     Indication: Product used for unknown indication
     Dosage: UNK
     Route: 065

REACTIONS (13)
  - Dyspnoea exertional [Unknown]
  - Chest discomfort [Unknown]
  - Cough [Unknown]
  - Vertigo [Unknown]
  - Productive cough [Unknown]
  - Dust allergy [Unknown]
  - Seasonal allergy [Unknown]
  - Allergy to animal [Unknown]
  - Ear discomfort [Unknown]
  - Infection [Unknown]
  - Chest pain [Unknown]
  - Wheezing [Unknown]
  - Asthma [Unknown]

NARRATIVE: CASE EVENT DATE: 20151101
